FAERS Safety Report 13073153 (Version 2)
Quarter: 2019Q2

REPORT INFORMATION
  Report Type: Spontaneous
  Country: US (occurrence: US)
  Receive Date: 20161229
  Receipt Date: 20190618
  Transmission Date: 20190711
  Serious: Yes (Other)
  Sender: FDA-Public Use
  Company Number: US-PFIZER INC-2016592122

PATIENT
  Age: 26 Year
  Sex: Female

DRUGS (6)
  1. LYRICA [Suspect]
     Active Substance: PREGABALIN
     Dosage: 50 MG, 4X/DAY
     Route: 048
     Dates: start: 20190604
  2. OCELLA [Concomitant]
     Active Substance: DROSPIRENONE\ETHINYL ESTRADIOL
     Dosage: 1 DF, DAILY [DROSPIRENONE: 3 MG]\,[ETHINYLESTRADIOL: 0.03 MG]
     Route: 048
     Dates: start: 20160525
  3. HYOSCYAMINE SULFATE. [Concomitant]
     Active Substance: HYOSCYAMINE SULFATE
     Dosage: 0.125 MG, DAILY (3-4 TIMES DAILY)
     Route: 048
     Dates: start: 20150105
  4. ALOSETRON HCL [Concomitant]
     Active Substance: ALOSETRON HYDROCHLORIDE
     Dosage: 1 MG, 2X/DAY
     Route: 048
  5. ERGOCALCIFEROL. [Concomitant]
     Active Substance: ERGOCALCIFEROL
     Dosage: 50000 IU (THREE TIMES A WEEK)
     Dates: start: 20150422
  6. LYRICA [Suspect]
     Active Substance: PREGABALIN
     Indication: FIBROMYALGIA
     Dosage: 50 MG, 4X/DAY
     Route: 048
     Dates: start: 20160601

REACTIONS (2)
  - Off label use [Unknown]
  - Drug tolerance [Unknown]
